FAERS Safety Report 14412946 (Version 1)
Quarter: 2018Q1

REPORT INFORMATION
  Report Type: Spontaneous
  Country: US (occurrence: US)
  Receive Date: 20180119
  Receipt Date: 20180119
  Transmission Date: 20180509
  Serious: Yes (Hospitalization)
  Sender: FDA-Public Use
  Company Number: None

PATIENT
  Age: 52 Year
  Sex: Male
  Weight: 97.2 kg

DRUGS (9)
  1. UROXALTRAL [Concomitant]
  2. ZETIA [Concomitant]
     Active Substance: EZETIMIBE
  3. FENOFIBRATE. [Concomitant]
     Active Substance: FENOFIBRATE
  4. ECOTRIN [Concomitant]
     Active Substance: ASPIRIN
  5. COQ10 [Concomitant]
     Active Substance: UBIDECARENONE
  6. NORVASC [Concomitant]
     Active Substance: AMLODIPINE BESYLATE
  7. PRINIVIL [Concomitant]
     Active Substance: LISINOPRIL
  8. ALEVE [Suspect]
     Active Substance: NAPROXEN SODIUM
     Indication: MUSCULOSKELETAL PAIN
     Dosage: 220X2 ONCE PO
     Route: 048
  9. ATIVAN [Concomitant]
     Active Substance: LORAZEPAM

REACTIONS (2)
  - Anaphylactic reaction [None]
  - Hypotension [None]

NARRATIVE: CASE EVENT DATE: 20171019
